FAERS Safety Report 19819806 (Version 3)
Quarter: 2021Q4

REPORT INFORMATION
  Report Type: Report from Study
  Country: FI (occurrence: FI)
  Receive Date: 20210913
  Receipt Date: 20211006
  Transmission Date: 20220304
  Serious: Yes (Hospitalization)
  Sender: FDA-Public Use
  Company Number: FI-ROCHE-2905833

PATIENT
  Age: 65 Year
  Sex: Female
  Weight: 43 kg

DRUGS (30)
  1. OCRELIZUMAB [Suspect]
     Active Substance: OCRELIZUMAB
     Indication: Primary progressive multiple sclerosis
     Dosage: NEXT DOSE ON 15/NOV/2011, 17/APR/2012, 03/MAY/2012, 02/OCT/2012, 16/OCT/2012, 19/MAR/2013, 03/APR/20
     Route: 042
     Dates: start: 20111101, end: 20151220
  2. OCRELIZUMAB [Suspect]
     Active Substance: OCRELIZUMAB
     Indication: Primary progressive multiple sclerosis
     Dosage: NEXT DOSE OF OPEN LABEL ON 04/JAN/2016, 06/JUN/2016 (256 ML), 20/JUN/2016 (252 ML).?TWO IV INFUSIONS
     Route: 042
     Dates: start: 20151221
  3. OCRELIZUMAB [Suspect]
     Active Substance: OCRELIZUMAB
     Dosage: SUBSEQUENT DOSE: 31/MAY/2017 (522 ML), 10/APR/2018 (520 ML), 19/SEP/2018 (520 ML), 07/MAR/2019 (520
     Route: 042
     Dates: start: 20161212
  4. ATARAX [Concomitant]
     Active Substance: HYDROXYZINE HYDROCHLORIDE
     Dosage: NEXT DOSE ON 15/NOV/2011, 17/APR/2012, 03/MAY/2012, 02/OCT/2012, 16/OCT/2012, 19/MAR/2013, 03/APR/20
     Dates: start: 20111101
  5. METHYLPREDNISOLONE [Concomitant]
     Active Substance: METHYLPREDNISOLONE
     Dosage: NEXT DOSE ON 15/NOV/2011, 17/APR/2012, 03/MAY/2012, 02/OCT/2012, 16/OCT/2012, 19/MAR/2013, 03/APR/20
     Dates: start: 20111101
  6. PANADOL [Concomitant]
     Active Substance: ACETAMINOPHEN
     Dates: start: 20190307
  7. ACETAMINOPHEN [Concomitant]
     Active Substance: ACETAMINOPHEN
     Dosage: NEXT DOSE ON 06/FEB/2019, 15/NOV/2011, 22/AUG/2019, 03/NOV/2017, 19/SEP/2018,
     Dates: start: 20111101
  8. ACETAMINOPHEN [Concomitant]
     Active Substance: ACETAMINOPHEN
     Dosage: NEXT DOSE ON 15/NOV/2011, 17/APR/2012, 03/MAY/2012, 02/OCT/2012, 16/OCT/2012, 19/MAR/2013, 03/APR/20
     Dates: start: 20180410
  9. ATORVASTATIN [Concomitant]
     Active Substance: ATORVASTATIN
     Dates: start: 20121003, end: 20140918
  10. ATORVASTATIN [Concomitant]
     Active Substance: ATORVASTATIN
     Dates: start: 20140919
  11. DEXPANTHENOL [Concomitant]
     Active Substance: DEXPANTHENOL
     Indication: Dry eye
     Dates: start: 20130401
  12. BISOPROLOL [Concomitant]
     Active Substance: BISOPROLOL
     Indication: Myocardial infarction
     Dates: start: 20200904
  13. IBUPROFEN [Concomitant]
     Active Substance: IBUPROFEN
     Indication: Gout
     Dates: start: 20200731
  14. DINIT (FINLAND) [Concomitant]
     Indication: Myocardial infarction
     Dates: start: 20200903
  15. NOVORAPID [Concomitant]
     Active Substance: INSULIN ASPART
     Indication: Diabetes mellitus
  16. NOVORAPID [Concomitant]
     Active Substance: INSULIN ASPART
     Indication: Diabetes mellitus
     Dates: start: 20210702, end: 20210702
  17. NOVORAPID [Concomitant]
     Active Substance: INSULIN ASPART
     Dates: start: 20210703, end: 20210703
  18. NOVORAPID [Concomitant]
     Active Substance: INSULIN ASPART
     Dates: start: 20210704, end: 20210704
  19. NOVORAPID [Concomitant]
     Active Substance: INSULIN ASPART
     Dates: start: 20210705
  20. ASPIRIN [Concomitant]
     Active Substance: ASPIRIN
     Dates: end: 20120927
  21. ASPIRIN [Concomitant]
     Active Substance: ASPIRIN
     Dates: start: 20121008, end: 20210831
  22. METOPROLOL [Concomitant]
     Active Substance: METOPROLOL
     Dates: start: 20200902
  23. PANTOPRAZOLE SODIUM [Concomitant]
     Active Substance: PANTOPRAZOLE SODIUM
     Indication: Myocardial infarction
     Dates: start: 20200904, end: 20200906
  24. PANTOPRAZOLE SODIUM [Concomitant]
     Active Substance: PANTOPRAZOLE SODIUM
     Dates: start: 20200908
  25. TRESIBA [Concomitant]
     Active Substance: INSULIN DEGLUDEC
     Indication: Diabetes mellitus
     Dates: start: 20210702, end: 20210704
  26. TRESIBA [Concomitant]
     Active Substance: INSULIN DEGLUDEC
     Dates: start: 20210705, end: 20210828
  27. OBSIDAN FE++ COMP [Concomitant]
     Indication: Anaemia
     Dates: start: 20210831
  28. PREDNISOLONE [Concomitant]
     Active Substance: PREDNISOLONE
     Indication: Gout
     Dates: start: 20200731, end: 20200803
  29. PREDNISOLONE [Concomitant]
     Active Substance: PREDNISOLONE
     Dates: start: 20210812, end: 20210827
  30. PREDNISOLONE [Concomitant]
     Active Substance: PREDNISOLONE
     Dates: start: 20210907

REACTIONS (1)
  - Lower respiratory tract infection [Recovered/Resolved]

NARRATIVE: CASE EVENT DATE: 20210822
